FAERS Safety Report 8334704-5 (Version None)
Quarter: 2012Q2

REPORT INFORMATION
  Report Type: 
  Country: None (occurrence: None)
  Receive Date: 20120503
  Receipt Date: 20120423
  Transmission Date: 20120825
  Serious: Yes (Hospitalization)
  Sender: FDA-Public Use
  Company Number: US-ROCHE-1055773

PATIENT
  Sex: Female
  Weight: 57.2 kg

DRUGS (20)
  1. VISMODEGIB [Suspect]
     Indication: PANCREATIC CARCINOMA METASTATIC
     Dosage: DATE OF LAST DOSE PRIOR TO SAE: 27 MARCH 2012
     Dates: start: 20120320
  2. DEXAMETHASONE [Concomitant]
     Indication: NAUSEA
     Dosage: FREQUENCY: WICHEMO
     Route: 042
     Dates: start: 20120222
  3. COLACE [Concomitant]
     Route: 048
     Dates: start: 20120110
  4. ONDANSETRON [Concomitant]
     Dosage: FREQUENCY: CHEMOTHERAPY DAY 2,3 AND 4.
     Route: 048
     Dates: start: 20120222
  5. GEMCITABINE HYDROCHLORIDE [Suspect]
     Indication: PANCREATIC CARCINOMA METASTATIC
     Dates: start: 20120222
  6. ASPIRIN [Concomitant]
     Route: 048
     Dates: start: 19920101, end: 20120331
  7. SELEGILINE [Concomitant]
     Indication: PARKINSON'S DISEASE
     Route: 048
     Dates: start: 20080101
  8. CARBIDOPA AND LEVODOPA [Concomitant]
     Indication: PARKINSON'S DISEASE
     Dosage: ONE /HALF TABLET
     Route: 048
     Dates: start: 19920101
  9. OXYCODONE HCL [Concomitant]
     Indication: ABDOMINAL PAIN UPPER
     Dates: start: 20120416
  10. CLINDAMYCIN [Concomitant]
     Route: 042
     Dates: start: 20120401, end: 20120401
  11. NASONEX [Concomitant]
     Indication: SEASONAL ALLERGY
     Dosage: FREQUENCY PRN (TWO SPRAYS)
     Route: 045
     Dates: start: 20040101
  12. ONDANSETRON [Concomitant]
     Indication: NAUSEA
     Dosage: FREQUENCY: WICHEMO
     Route: 042
     Dates: start: 20120222
  13. PACLITAXEL [Suspect]
     Indication: PANCREATIC CARCINOMA METASTATIC
     Dates: start: 20120222
  14. LOVENOX [Concomitant]
  15. CARBIDOPA AND LEVODOPA [Concomitant]
     Dosage: ONE /HALF TABLET
     Route: 048
     Dates: start: 19920101
  16. SODIUM CHLORIDE [Concomitant]
     Route: 042
     Dates: start: 20120331, end: 20120402
  17. KEFLEX [Concomitant]
  18. ENOXAPARIN [Concomitant]
     Indication: EMBOLISM
     Dates: start: 20120216
  19. GNP STOOL SOFTENER [Concomitant]
     Route: 048
  20. ZYRTEC [Concomitant]
     Indication: HYPERSENSITIVITY
     Route: 048
     Dates: start: 20040101

REACTIONS (1)
  - CELLULITIS [None]
